FAERS Safety Report 8883970 (Version 2)
Quarter: 2013Q1

REPORT INFORMATION
  Report Type: Spontaneous
  Country: US (occurrence: US)
  Receive Date: 20121102
  Receipt Date: 20130320
  Transmission Date: 20140127
  Serious: Yes (Death)
  Sender: FDA-Public Use
  Company Number: US-ELI_LILLY_AND_COMPANY-US201207004328

PATIENT
  Age: 83 None
  Sex: Female
  Weight: 53.06 kg

DRUGS (7)
  1. FORTEO [Suspect]
     Indication: OSTEOPOROSIS
     Dosage: 20 UG, QD
     Route: 058
     Dates: start: 201203
  2. FORTEO [Suspect]
     Dosage: 20 UG, QD
     Route: 058
  3. ANALGESICS [Concomitant]
     Indication: PAIN
  4. ASPIRIN [Concomitant]
     Dosage: MGUNK, QD
  5. ATIVAN [Concomitant]
     Dosage: 0.5 MG, PRN
  6. CARDIZEM                           /00489701/ [Concomitant]
     Dosage: 60 MG, BID
  7. VITAMIN D [Concomitant]
     Dosage: 2000 IU, QD

REACTIONS (2)
  - Myocardial infarction [Fatal]
  - Pneumonia [Recovered/Resolved]
